FAERS Safety Report 22347557 (Version 1)
Quarter: 2023Q2

REPORT INFORMATION
  Report Type: Spontaneous
  Country: US (occurrence: US)
  Receive Date: 20230522
  Receipt Date: 20230522
  Transmission Date: 20230722
  Serious: No
  Sender: FDA-Public Use
  Company Number: US-PCCINC-2023-PEL-000280

PATIENT

DRUGS (1)
  1. GABLOFEN [Suspect]
     Active Substance: BACLOFEN
     Indication: Product used for unknown indication
     Dosage: 241 MICROGRAM/DAY
     Route: 037

REACTIONS (4)
  - Muscle tightness [Recovered/Resolved]
  - Implant site swelling [Recovered/Resolved]
  - Implant site discharge [Recovered/Resolved]
  - Drug ineffective [Recovered/Resolved]
